FAERS Safety Report 4680007-X (Version None)
Quarter: 2005Q2

REPORT INFORMATION
  Report Type: 
  Country: None (occurrence: None)
  Receive Date: 20050602
  Receipt Date: 20050527
  Transmission Date: 20051028
  Serious: Yes (Disabling)
  Sender: FDA-Public Use
  Company Number: BR-GLAXOSMITHKLINE-A0560616A

PATIENT
  Age: 57 Year
  Sex: Female
  Weight: 78 kg

DRUGS (12)
  1. AVANDIA [Suspect]
     Dosage: 4MG PER DAY
     Route: 048
     Dates: start: 20050526
  2. ENALAPRIL MALEATE [Concomitant]
     Dosage: 10MG PER DAY
     Route: 048
  3. TENADREN [Concomitant]
     Dosage: 40MG PER DAY
     Route: 048
  4. PURAN T4 [Concomitant]
     Dosage: 50MG PER DAY
     Route: 048
  5. LACTOBACILLUS [Concomitant]
  6. METFORMIN [Concomitant]
     Dosage: 850MG PER DAY
     Route: 048
  7. GINKGO BILOBA [Concomitant]
     Dosage: 80MG TWICE PER DAY
     Route: 048
  8. LACTASE [Concomitant]
  9. VALIUM [Concomitant]
     Dosage: 5MG PER DAY
     Route: 048
  10. HOMEOPATHIC MED [Concomitant]
  11. L-GLUTAMINE [Concomitant]
  12. GLUCOSAMINE [Concomitant]

REACTIONS (7)
  - ANXIETY [None]
  - ASTHENIA [None]
  - DIZZINESS [None]
  - DRUG INEFFECTIVE [None]
  - DYSMENORRHOEA [None]
  - MYALGIA [None]
  - URETHRAL PAIN [None]
